FAERS Safety Report 19662971 (Version 1)
Quarter: 2021Q3

REPORT INFORMATION
  Report Type: Spontaneous
  Country: US (occurrence: US)
  Receive Date: 20210805
  Receipt Date: 20210805
  Transmission Date: 20211014
  Serious: No
  Sender: FDA-Public Use
  Company Number: US-BAUSCH-BL-2021-026024

PATIENT
  Age: 13 Year
  Sex: Male

DRUGS (1)
  1. LUZU [Suspect]
     Active Substance: LULICONAZOLE
     Indication: TINEA INFECTION
     Route: 061
     Dates: start: 20210708, end: 20210713

REACTIONS (4)
  - Blister [Recovering/Resolving]
  - Condition aggravated [Recovering/Resolving]
  - Application site burn [Recovering/Resolving]
  - Tinea infection [Recovering/Resolving]

NARRATIVE: CASE EVENT DATE: 202107
